FAERS Safety Report 19152381 (Version 1)
Quarter: 2021Q2

REPORT INFORMATION
  Report Type: Spontaneous
  Country: US (occurrence: US)
  Receive Date: 20210416
  Receipt Date: 20210416
  Transmission Date: 20210717
  Serious: Yes (Death)
  Sender: FDA-Public Use
  Company Number: None

PATIENT
  Sex: Female

DRUGS (5)
  1. POTASSIUM CHLORIDE ER 8 MEQ [Concomitant]
     Dates: start: 20201118, end: 20210301
  2. TACROLIMUS. [Suspect]
     Active Substance: TACROLIMUS
     Indication: RENAL TRANSPLANT
     Route: 048
     Dates: start: 20191106, end: 20210301
  3. MAGNESIUM OXIDE 400 MG [Concomitant]
     Active Substance: MAGNESIUM OXIDE
     Dates: start: 20201102, end: 20210301
  4. FLUDROCORTISONE 0.1 MG [Concomitant]
     Active Substance: FLUDROCORTISONE
     Dates: start: 20200210, end: 20210301
  5. MYCOPHENOLIC ACID. [Suspect]
     Active Substance: MYCOPHENOLIC ACID
     Indication: RENAL TRANSPLANT
     Route: 048
     Dates: start: 20191106, end: 20210301

REACTIONS (1)
  - Death [None]
